FAERS Safety Report 9820691 (Version 1)
Quarter: 2013Q4

REPORT INFORMATION
  Report Type: Spontaneous
  Country: US (occurrence: None)
  Receive Date: 20131028
  Receipt Date: 20131028
  Transmission Date: 20140711
  Serious: Yes (Other)
  Sender: FDA-Public Use
  Company Number: 2013US001366

PATIENT
  Age: 56 Year
  Sex: Male
  Weight: 64 kg

DRUGS (6)
  1. ICLUSIG [Suspect]
     Indication: ACUTE LYMPHOCYTIC LEUKAEMIA
     Route: 048
     Dates: start: 20130211
  2. ZOVIRAX (ACICLOVIR) [Concomitant]
  3. TOPROL (METOPROLOL SUCCINATE) [Concomitant]
  4. FLUCONAZOLE (FLUCONAZOLE) [Concomitant]
  5. BACTRIM (SULFAMETHOXAZOLE) [Concomitant]
  6. RIMANTADINE (RIMANTADINE) [Concomitant]

REACTIONS (1)
  - Rash [None]
